FAERS Safety Report 8097861-4 (Version None)
Quarter: 2012Q1

REPORT INFORMATION
  Report Type: 
  Country: None (occurrence: None)
  Receive Date: 20120128
  Receipt Date: 20110814
  Transmission Date: 20120608
  Serious: No
  Sender: FDA-Public Use
  Company Number: US-ABBOTT-11P-163-0846410-00

PATIENT
  Age: 48 Year
  Sex: Male

DRUGS (7)
  1. HIGH BLOOD PRESSURE MEDICATION [Concomitant]
     Indication: PRODUCT USED FOR UNKNOWN INDICATION
  2. LIPITOR [Concomitant]
     Indication: BLOOD CHOLESTEROL INCREASED
  3. BALSALAZIDE DISODIUM [Concomitant]
     Indication: CROHN'S DISEASE
     Dosage: NINE DAILY
  4. AZATHIOPRINE [Concomitant]
     Indication: CROHN'S DISEASE
     Dosage: TWO DAILY
  5. HUMIRA [Suspect]
     Indication: CROHN'S DISEASE
     Dates: start: 20110401
  6. DILTIAZEM HCL [Concomitant]
     Indication: MIGRAINE
  7. PRILOSEC OTC [Concomitant]
     Indication: DYSPEPSIA

REACTIONS (1)
  - INJECTION SITE PAIN [None]
